FAERS Safety Report 4790241-6 (Version None)
Quarter: 2005Q4

REPORT INFORMATION
  Report Type: 
  Country: None (occurrence: None)
  Receive Date: 20051006
  Receipt Date: 20050926
  Transmission Date: 20060501
  Serious: Yes (Hospitalization)
  Sender: FDA-Public Use
  Company Number: PHBS2005NO14143

PATIENT
  Age: 43 Year
  Sex: Male

DRUGS (2)
  1. TEGRETOL [Suspect]
     Indication: POST HERPETIC NEURALGIA
     Dosage: 200 MG, QD
     Route: 048
     Dates: start: 20050830
  2. TEGRETOL [Suspect]
     Dosage: 200 MG AND 400 MG/DAY
     Route: 048
     Dates: end: 20050908

REACTIONS (12)
  - ABDOMINAL PAIN [None]
  - ARTHRALGIA [None]
  - BODY TEMPERATURE INCREASED [None]
  - C-REACTIVE PROTEIN INCREASED [None]
  - FATIGUE [None]
  - HAEMANGIOMA OF LIVER [None]
  - HEADACHE [None]
  - LIVER FUNCTION TEST ABNORMAL [None]
  - NEPHROLITHIASIS [None]
  - PLATELET COUNT DECREASED [None]
  - PRURITUS [None]
  - VOMITING [None]
